FAERS Safety Report 5051846-0 (Version None)
Quarter: 2006Q3

REPORT INFORMATION
  Report Type: 
  Country: None (occurrence: None)
  Receive Date: 20060714
  Receipt Date: 20060323
  Transmission Date: 20061208
  Serious: Yes (Hospitalization)
  Sender: FDA-Public Use
  Company Number: FR-ABBOTT-06P-056-0329562-00

PATIENT
  Sex: Female
  Weight: 56 kg

DRUGS (3)
  1. HUMIRA [Suspect]
     Indication: CROHN'S DISEASE
     Route: 058
     Dates: start: 20050101
  2. HUMIRA [Suspect]
  3. HUMIRA [Suspect]

REACTIONS (4)
  - ARTHRALGIA [None]
  - ASTHENIA [None]
  - HEADACHE [None]
  - MYALGIA [None]
